FAERS Safety Report 5264800-0 (Version None)
Quarter: 2007Q1

REPORT INFORMATION
  Report Type: 
  Country: None (occurrence: None)
  Receive Date: 20061124
  Receipt Date: 20050608
  Transmission Date: 20070707
  Serious: Yes (Other)
  Sender: FDA-Public Use
  Company Number: 2005UW08834

PATIENT
  Sex: Female

DRUGS (2)
  1. ATACAND [Suspect]
     Dosage: 32 MG ONCE PO
     Route: 048
  2. ATACAND HCT [Suspect]
     Dosage: 32-12.5 MG

REACTIONS (2)
  - DRUG INEFFECTIVE [None]
  - WRONG DRUG ADMINISTERED [None]
